FAERS Safety Report 15221730 (Version 2)
Quarter: 2018Q4

REPORT INFORMATION
  Report Type: Report from Study
  Country: US (occurrence: US)
  Receive Date: 20180731
  Receipt Date: 20181005
  Transmission Date: 20190204
  Serious: Yes (Other)
  Sender: FDA-Public Use
  Company Number: US-JAZZ-2018-US-005048

PATIENT
  Sex: Male

DRUGS (17)
  1. XYREM [Suspect]
     Active Substance: SODIUM OXYBATE
     Dosage: DOSE ADJUSTMENT
     Route: 048
     Dates: start: 200701, end: 200809
  2. NUVIGIL [Concomitant]
     Active Substance: ARMODAFINIL
  3. PREDNISOLONE ACETATE. [Concomitant]
     Active Substance: PREDNISOLONE ACETATE
  4. XYREM [Suspect]
     Active Substance: SODIUM OXYBATE
     Dosage: 2.25 G, BID
     Route: 048
     Dates: start: 200809
  5. MODAFINIL. [Concomitant]
     Active Substance: MODAFINIL
  6. HUMIRA [Concomitant]
     Active Substance: ADALIMUMAB
  7. ALENDRONATE SODIUM. [Concomitant]
     Active Substance: ALENDRONATE SODIUM
  8. AMPHOTERICIN B. [Concomitant]
     Active Substance: AMPHOTERICIN B
  9. ASPIRIN 81 [Concomitant]
     Active Substance: ASPIRIN
  10. NITRO-DUR [Concomitant]
     Active Substance: NITROGLYCERIN
  11. DOXYCYCLINE HYCLATE. [Concomitant]
     Active Substance: DOXYCYCLINE HYCLATE
  12. TOBRAMYCIN. [Concomitant]
     Active Substance: TOBRAMYCIN
  13. VANCOMYCIN HCL [Concomitant]
     Active Substance: VANCOMYCIN HYDROCHLORIDE
  14. XYREM [Suspect]
     Active Substance: SODIUM OXYBATE
     Indication: NARCOLEPSY
     Dosage: 4.5 G, QD
     Route: 048
     Dates: start: 200512, end: 200701
  15. VORICONAZOLE. [Concomitant]
     Active Substance: VORICONAZOLE
  16. SYNTHROID [Concomitant]
     Active Substance: LEVOTHYROXINE SODIUM
  17. FOSAMAX [Concomitant]
     Active Substance: ALENDRONATE SODIUM

REACTIONS (1)
  - Blindness [Not Recovered/Not Resolved]
